FAERS Safety Report 17376071 (Version 1)
Quarter: 2020Q1

REPORT INFORMATION
  Report Type: Spontaneous
  Country: GB (occurrence: GB)
  Receive Date: 20200206
  Receipt Date: 20200206
  Transmission Date: 20200409
  Serious: Yes (Other)
  Sender: FDA-Public Use
  Company Number: GB-SUN PHARMACEUTICAL INDUSTRIES LTD-2020RR-235781

PATIENT
  Age: 25 Year
  Sex: Female

DRUGS (25)
  1. BRIVIACT [Suspect]
     Active Substance: BRIVARACETAM
     Indication: EPILEPSY
     Dosage: UNK UNK, DAILY
     Route: 065
     Dates: start: 201807
  2. BRIVIACT [Suspect]
     Active Substance: BRIVARACETAM
     Dosage: 100 MILLIGRAM, 2X/DAY (BID)
     Route: 065
     Dates: start: 201812
  3. BRIVIACT [Suspect]
     Active Substance: BRIVARACETAM
     Dosage: 50 MILLIGRAM, 2X/DAY (BID)
     Route: 065
  4. BRIVIACT [Suspect]
     Active Substance: BRIVARACETAM
     Dosage: 30 MILLIGRAM, 2X/DAY (BID)
     Route: 065
  5. LAMOTRIGINE. [Concomitant]
     Active Substance: LAMOTRIGINE
     Indication: EPILEPSY
     Dosage: 200 MILLIGRAM, 2X/DAY (BID)
     Route: 065
     Dates: start: 201806
  6. LAMOTRIGINE. [Concomitant]
     Active Substance: LAMOTRIGINE
     Dosage: 150 MILLIGRAM, 2X/DAY (BID)
     Route: 065
  7. LAMOTRIGINE. [Concomitant]
     Active Substance: LAMOTRIGINE
     Dosage: 100 MILLIGRAM, 2X/DAY (BID)
     Route: 065
  8. LAMOTRIGINE. [Concomitant]
     Active Substance: LAMOTRIGINE
     Dosage: 150 MILLIGRAM, 2X/DAY (BID)
     Route: 065
     Dates: start: 201902
  9. BRIVIACT [Suspect]
     Active Substance: BRIVARACETAM
     Dosage: 10 MILLIGRAM, 2X/DAY (BID)
     Route: 065
     Dates: start: 201805
  10. LAMOTRIGINE. [Concomitant]
     Active Substance: LAMOTRIGINE
     Dosage: 125 MILLIGRAM, 2X/DAY (BID)
     Route: 065
     Dates: start: 201903
  11. LAMOTRIGINE. [Concomitant]
     Active Substance: LAMOTRIGINE
     Dosage: 250 MILLIGRAM, 2X/DAY (BID)
     Route: 065
     Dates: start: 201805
  12. LAMOTRIGINE. [Concomitant]
     Active Substance: LAMOTRIGINE
     Dosage: 200 MILLIGRAM, 2X/DAY (BID)
     Route: 065
  13. LEVETIRACETAM. [Suspect]
     Active Substance: LEVETIRACETAM
     Indication: EPILEPSY
     Dosage: 1000 MILLIGRAM, 2X/DAY (BID)
     Route: 065
  14. LEVETIRACETAM. [Suspect]
     Active Substance: LEVETIRACETAM
     Dosage: 500 MILLIGRAM, 2X/DAY (BID)
     Route: 065
     Dates: start: 201805
  15. LEVETIRACETAM. [Suspect]
     Active Substance: LEVETIRACETAM
     Dosage: 500 MILLIGRAM, 2X/DAY (BID)
     Route: 065
     Dates: start: 201806
  16. BRIVIACT [Suspect]
     Active Substance: BRIVARACETAM
     Dosage: 75 MILLIGRAM, 2X/DAY (BID)
     Route: 065
     Dates: start: 201808
  17. ZONISAMIDE. [Concomitant]
     Active Substance: ZONISAMIDE
     Indication: EPILEPSY
     Dosage: UNK
     Route: 065
  18. LEVETIRACETAM. [Suspect]
     Active Substance: LEVETIRACETAM
     Dosage: 250 MILLIGRAM, 2X/DAY (BID)
     Route: 065
     Dates: start: 201903
  19. LEVETIRACETAM. [Suspect]
     Active Substance: LEVETIRACETAM
     Dosage: 250 MILLIGRAM, ONCE DAILY (QD)
     Route: 065
     Dates: start: 201903
  20. LAMOTRIGINE. [Concomitant]
     Active Substance: LAMOTRIGINE
     Dosage: 150 MILLIGRAM, 2X/DAY (BID)
     Route: 065
     Dates: start: 201811
  21. LEVETIRACETAM. [Suspect]
     Active Substance: LEVETIRACETAM
     Dosage: UNK UNK, DAILY
     Route: 065
     Dates: start: 2019
  22. LEVETIRACETAM. [Suspect]
     Active Substance: LEVETIRACETAM
     Dosage: UNK UNK, DAILY
     Route: 065
     Dates: start: 201808
  23. BRIVIACT [Suspect]
     Active Substance: BRIVARACETAM
     Dosage: 20 MILLIGRAM, 2X/DAY (BID)
     Route: 065
     Dates: start: 20180601
  24. BRIVIACT [Suspect]
     Active Substance: BRIVARACETAM
     Dosage: UNK UNK, DAILY
     Route: 065
     Dates: start: 201811
  25. VALPROATE [Concomitant]
     Active Substance: VALPROIC ACID
     Indication: EPILEPSY
     Dosage: UNK
     Route: 065

REACTIONS (6)
  - Off label use [Unknown]
  - Dizziness [Unknown]
  - Seizure [Unknown]
  - Irritability [Unknown]
  - Underdose [Unknown]
  - Mood swings [Unknown]

NARRATIVE: CASE EVENT DATE: 201805
